FAERS Safety Report 16324770 (Version 1)
Quarter: 2019Q2

REPORT INFORMATION
  Report Type: Spontaneous
  Country: DE (occurrence: DE)
  Receive Date: 20190517
  Receipt Date: 20190517
  Transmission Date: 20190711
  Serious: Yes (Other)
  Sender: FDA-Public Use
  Company Number: PHHY2019DE109597

PATIENT
  Sex: Male

DRUGS (1)
  1. TAMSULOSIN ? 1 A PHARMA [Suspect]
     Active Substance: TAMSULOSIN
     Indication: PRODUCT USED FOR UNKNOWN INDICATION
     Dosage: UNK UNK, QD
     Route: 065

REACTIONS (4)
  - Eye irritation [Unknown]
  - Asthenia [Unknown]
  - Suicide threat [Unknown]
  - Dizziness [Unknown]
